FAERS Safety Report 12309261 (Version 1)
Quarter: 2016Q2

REPORT INFORMATION
  Report Type: Spontaneous
  Country: US (occurrence: US)
  Receive Date: 20160427
  Receipt Date: 20160427
  Transmission Date: 20160815
  Serious: No
  Sender: FDA-Public Use
  Company Number: US-BIOGEN-2016BI00226115

PATIENT

DRUGS (3)
  1. TECFIDERA [Suspect]
     Active Substance: DIMETHYL FUMARATE
     Indication: MULTIPLE SCLEROSIS
  2. TYSABRI [Concomitant]
     Active Substance: NATALIZUMAB
     Indication: MULTIPLE SCLEROSIS
  3. AVONEX [Concomitant]
     Active Substance: INTERFERON BETA-1A
     Indication: MULTIPLE SCLEROSIS

REACTIONS (8)
  - Therapy cessation [Unknown]
  - Flushing [Unknown]
  - Relapsing-remitting multiple sclerosis [Unknown]
  - Adverse reaction [Unknown]
  - Influenza [Unknown]
  - Central nervous system lesion [Unknown]
  - Hypersensitivity [Unknown]
  - Weight decreased [Unknown]
